FAERS Safety Report 18351184 (Version 1)
Quarter: 2020Q4

REPORT INFORMATION
  Report Type: Spontaneous
  Country: BD (occurrence: BD)
  Receive Date: 20201006
  Receipt Date: 20201006
  Transmission Date: 20210114
  Serious: Yes (Hospitalization, Congenital Anomaly, Other)
  Sender: FDA-Public Use
  Company Number: BD-INSUD PHARMA-2009BD00223

PATIENT

DRUGS (1)
  1. PROGESTERONE. [Suspect]
     Active Substance: PROGESTERONE
     Indication: PRODUCT USED FOR UNKNOWN INDICATION
     Dosage: FROM CONCEPTION UNTIL 7 MONTHS OF PREGNANCY
     Route: 064

REACTIONS (10)
  - Labial tie [Not Recovered/Not Resolved]
  - Chordee [Not Recovered/Not Resolved]
  - Congenital genital malformation male [Not Recovered/Not Resolved]
  - Patent ductus arteriosus [Not Recovered/Not Resolved]
  - Cleft palate [Not Recovered/Not Resolved]
  - Foetal exposure during pregnancy [Unknown]
  - Ankyloglossia congenital [Recovering/Resolving]
  - Post procedural haemorrhage [Recovered/Resolved]
  - Penoscrotal transposition [Not Recovered/Not Resolved]
  - Contraindicated product administered [Unknown]
